FAERS Safety Report 23034470 (Version 1)
Quarter: 2023Q4

REPORT INFORMATION
  Report Type: Spontaneous
  Country: FR (occurrence: FR)
  Receive Date: 20231005
  Receipt Date: 20231005
  Transmission Date: 20240110
  Serious: Yes (Other)
  Sender: FDA-Public Use
  Company Number: FR-AFSSAPS-LY2023000143

PATIENT
  Age: 51 Year
  Sex: Female
  Weight: 58 kg

DRUGS (4)
  1. PAROXETINE [Suspect]
     Active Substance: PAROXETINE
     Indication: Anxiety
     Dosage: 20 MILLIGRAM, DAILY
     Route: 048
     Dates: start: 20220601, end: 20221124
  2. PAROXETINE [Suspect]
     Active Substance: PAROXETINE
     Dosage: 10 MILLIGRAM, DAILY
     Route: 048
     Dates: start: 20221212, end: 20230115
  3. PAROXETINE [Suspect]
     Active Substance: PAROXETINE
     Dosage: GRADUAL REDUCTION IN DOSAGES {20MG/D
     Route: 048
     Dates: start: 20221124, end: 20221212
  4. PAROXETINE [Suspect]
     Active Substance: PAROXETINE
     Dosage: GRADUAL REDUCTION IN DOSAGES {10MG/D
     Route: 048
     Dates: start: 20230115

REACTIONS (2)
  - Urinary tract infection [Not Recovered/Not Resolved]
  - Withdrawal syndrome [Not Recovered/Not Resolved]

NARRATIVE: CASE EVENT DATE: 20230112
